FAERS Safety Report 7911205-7 (Version None)
Quarter: 2011Q4

REPORT INFORMATION
  Report Type: 
  Country: None (occurrence: None)
  Receive Date: 20111114
  Receipt Date: 20111102
  Transmission Date: 20120403
  Serious: No
  Sender: FDA-Public Use
  Company Number: US-JNJFOC-20111102306

PATIENT
  Age: 3 Decade
  Sex: Female

DRUGS (1)
  1. INVEGA SUSTENNA [Suspect]
     Indication: SCHIZOPHRENIA
     Route: 030
     Dates: start: 20090601

REACTIONS (1)
  - WEIGHT INCREASED [None]
